FAERS Safety Report 20862214 (Version 2)
Quarter: 2022Q3

REPORT INFORMATION
  Report Type: Spontaneous
  Country: IT (occurrence: IT)
  Receive Date: 20220523
  Receipt Date: 20220704
  Transmission Date: 20221026
  Serious: Yes (Other)
  Sender: FDA-Public Use
  Company Number: IT-NOVARTISPH-NVSC2022IT113192

PATIENT
  Age: 91 Year
  Sex: Male

DRUGS (8)
  1. BEOVU [Suspect]
     Active Substance: BROLUCIZUMAB-DBLL
     Indication: Age-related macular degeneration
     Dosage: UNK (LEFT EYE)
     Route: 031
  2. BEOVU [Suspect]
     Active Substance: BROLUCIZUMAB-DBLL
     Dosage: 1 DOSAGE FORM
     Route: 031
  3. ENALAPRIL MALEATE [Concomitant]
     Active Substance: ENALAPRIL MALEATE
     Indication: Hypertension
     Dosage: 1 DOSAGE FORM (FOR 8 HOURS)
     Route: 065
  4. CARDIOASPIRINA [Concomitant]
     Active Substance: ASPIRIN
     Indication: Product used for unknown indication
     Dosage: 1 DOSAGE FORM (8 HOURS)
     Route: 065
  5. RABEPRAZOLE SODIUM [Concomitant]
     Active Substance: RABEPRAZOLE SODIUM
     Indication: Product used for unknown indication
     Dosage: 1 DOSAGE FORM (20 HOURS)
     Route: 065
  6. TOVIAZ [Concomitant]
     Active Substance: FESOTERODINE FUMARATE
     Indication: Incontinence
     Dosage: 1 DOSAGE FORM (20 HOURS)
     Route: 065
  7. TAMSULOSIN [Concomitant]
     Active Substance: TAMSULOSIN
     Indication: Benign prostatic hyperplasia
     Dosage: 1 DOSAGE FORM (20 HOURS)
     Route: 065
  8. GENTAMICIN [Concomitant]
     Active Substance: GENTAMICIN
     Indication: Product used for unknown indication
     Dosage: UNK
     Route: 065

REACTIONS (12)
  - Glaucoma [Recovered/Resolved with Sequelae]
  - Choroidal neovascularisation [Unknown]
  - Detachment of retinal pigment epithelium [Unknown]
  - Macular cyst [Unknown]
  - Vitreous detachment [Unknown]
  - Blindness unilateral [Unknown]
  - Amaurosis [Unknown]
  - Eye pain [Unknown]
  - Conjunctival hyperaemia [Unknown]
  - Vitreous floaters [Unknown]
  - Hypertonia [Unknown]
  - Angiosclerosis [Unknown]

NARRATIVE: CASE EVENT DATE: 20220511
